FAERS Safety Report 4477809-1 (Version None)
Quarter: 2004Q4

REPORT INFORMATION
  Report Type: 
  Country: None (occurrence: None)
  Receive Date: 20041014
  Receipt Date: 20041011
  Transmission Date: 20050328
  Serious: Yes (Hospitalization)
  Sender: FDA-Public Use
  Company Number: USA-2004-0017152

PATIENT
  Age: 43 Year
  Sex: Female

DRUGS (2)
  1. MS CONTIN [Suspect]
     Dosage: MG
  2. ZICONOTIDE [Suspect]
     Dosage: INTRATHECAL
     Route: 037

REACTIONS (3)
  - DYSPEPSIA [None]
  - OESOPHAGEAL PAIN [None]
  - VOMITING [None]
